FAERS Safety Report 7088404-2 (Version None)
Quarter: 2010Q4

REPORT INFORMATION
  Report Type: 
  Country: None (occurrence: None)
  Receive Date: 20101108
  Receipt Date: 20101029
  Transmission Date: 20110411
  Serious: Yes (Hospitalization, Other)
  Sender: FDA-Public Use
  Company Number: US-ROCHE-710416

PATIENT
  Sex: Male
  Weight: 99.8 kg

DRUGS (4)
  1. PEGINTERFERON ALFA-2A [Suspect]
     Indication: HEPATITIS C
     Route: 058
     Dates: start: 20100416
  2. COPEGUS [Suspect]
     Indication: HEPATITIS C
     Dosage: DIVIDED DOSES
     Route: 048
     Dates: start: 20100416
  3. FAMOTIDINE [Concomitant]
  4. ENALAPRIL MALEATE [Concomitant]
     Dates: start: 20090101

REACTIONS (31)
  - ABDOMINAL DISCOMFORT [None]
  - ASTHENIA [None]
  - DEHYDRATION [None]
  - DRY MOUTH [None]
  - DYSGEUSIA [None]
  - DYSPHAGIA [None]
  - ELECTROLYTE IMBALANCE [None]
  - EXTRASYSTOLES [None]
  - FATIGUE [None]
  - GASTRITIS [None]
  - HYPERSENSITIVITY [None]
  - HYPERTENSION [None]
  - INFLAMMATION [None]
  - LIP DRY [None]
  - MUSCLE SPASMS [None]
  - MYALGIA [None]
  - NEPHROLITHIASIS [None]
  - PHARYNGEAL MASS [None]
  - PHOTOPSIA [None]
  - PRURITUS [None]
  - RED BLOOD CELL COUNT DECREASED [None]
  - SKIN DISCOLOURATION [None]
  - SKIN EXFOLIATION [None]
  - TINEA PEDIS [None]
  - TONGUE DRY [None]
  - URTICARIA [None]
  - VIRAL INFECTION [None]
  - VISION BLURRED [None]
  - VITREOUS FLOATERS [None]
  - WEIGHT DECREASED [None]
  - WHITE BLOOD CELL COUNT DECREASED [None]
